FAERS Safety Report 9933054 (Version 1)
Quarter: 2014Q1

REPORT INFORMATION
  Report Type: Spontaneous
  Country: US (occurrence: US)
  Receive Date: 20140228
  Receipt Date: 20140228
  Transmission Date: 20141002
  Serious: No
  Sender: FDA-Public Use
  Company Number: US-ABBVIE-13P-163-1093740-00

PATIENT
  Age: 62 Year
  Sex: Male

DRUGS (7)
  1. ANDROGEL 1% [Suspect]
     Indication: BLOOD TESTOSTERONE DECREASED
     Dosage: TWO 50MG PACKETS
     Dates: start: 2002, end: 2012
  2. DIOVAN [Concomitant]
     Indication: HYPERTENSION
  3. HYDROCHLOROTHIAZIDE [Concomitant]
     Indication: HYPERTENSION
  4. ATENOLOL [Concomitant]
     Indication: HYPERTENSION
  5. ATRIPLA [Concomitant]
     Indication: HIV INFECTION
  6. LIPITOR [Concomitant]
     Indication: BLOOD CHOLESTEROL INCREASED
  7. ASPIRIN [Concomitant]
     Indication: PRODUCT USED FOR UNKNOWN INDICATION

REACTIONS (3)
  - Drug administered at inappropriate site [Recovered/Resolved]
  - Blood testosterone increased [Recovered/Resolved]
  - Product quality issue [Recovered/Resolved]
